FAERS Safety Report 6364934-3 (Version None)
Quarter: 2009Q3

REPORT INFORMATION
  Report Type: 
  Country: None (occurrence: None)
  Receive Date: 20090919
  Receipt Date: 20090804
  Transmission Date: 20100115
  Serious: No
  Sender: FDA-Public Use
  Company Number: US-ABBOTT-09P-163-0589084-00

PATIENT
  Sex: Female

DRUGS (4)
  1. HUMIRA [Suspect]
     Indication: PSORIATIC ARTHROPATHY
     Dosage: DAY 1
     Dates: start: 20090727
  2. TRAZODONE [Concomitant]
     Indication: DRUG USE FOR UNKNOWN INDICATION
  3. LORTAB [Concomitant]
     Indication: DRUG USE FOR UNKNOWN INDICATION
  4. ADVIL [Concomitant]
     Indication: DRUG USE FOR UNKNOWN INDICATION
     Dosage: AS REQUIRED

REACTIONS (3)
  - BACK PAIN [None]
  - NIGHT SWEATS [None]
  - PAINFUL RESPIRATION [None]
